FAERS Safety Report 16168555 (Version 8)
Quarter: 2022Q1

REPORT INFORMATION
  Report Type: Report from Study
  Country: JP (occurrence: JP)
  Receive Date: 20190408
  Receipt Date: 20220315
  Transmission Date: 20220423
  Serious: Yes (Other)
  Sender: FDA-Public Use
  Company Number: JP-TAKEDA-2019TJP007069

PATIENT
  Age: 53 Year
  Sex: Male
  Weight: 62 kg

DRUGS (8)
  1. LEUPROLIDE ACETATE [Suspect]
     Active Substance: LEUPROLIDE ACETATE
     Indication: Bulbospinal muscular atrophy congenital
     Dosage: 11.25 MILLIGRAM, Q3MONTHS
     Route: 058
     Dates: start: 20180205, end: 20181029
  2. LEUPROLIDE ACETATE [Suspect]
     Active Substance: LEUPROLIDE ACETATE
     Dosage: 11.25 MILLIGRAM, Q3MONTHS
     Route: 058
     Dates: start: 20190902, end: 20190902
  3. RIVOTRIL [Concomitant]
     Active Substance: CLONAZEPAM
     Indication: Hyperthyroidism
     Dosage: 1 MILLIGRAM
     Route: 065
  4. DILTIAZEM HYDROCHLORIDE [Concomitant]
     Active Substance: DILTIAZEM HYDROCHLORIDE
     Indication: Hyperthyroidism
     Dosage: 100 MILLIGRAM
     Route: 065
     Dates: end: 20190317
  5. GASLON [Concomitant]
     Active Substance: IRSOGLADINE MALEATE
     Indication: Gastric ulcer
     Dosage: 4 MILLIGRAM
     Route: 065
  6. RINDERON VG [Concomitant]
     Active Substance: BETAMETHASONE VALERATE\GENTAMICIN SULFATE
     Indication: Eczema
     Dosage: 5 GRAM
     Route: 065
  7. RINDERON VG [Concomitant]
     Active Substance: BETAMETHASONE VALERATE\GENTAMICIN SULFATE
     Indication: Pyoderma gangrenosum
  8. CARBIMAZOLE [Concomitant]
     Active Substance: CARBIMAZOLE
     Indication: Product used for unknown indication
     Dosage: 5 MILLIGRAM
     Route: 065
     Dates: end: 20200606

REACTIONS (4)
  - Injection site reaction [Recovering/Resolving]
  - Injection site reaction [Recovering/Resolving]
  - Condition aggravated [Recovering/Resolving]
  - Hyperlipidaemia [Recovering/Resolving]

NARRATIVE: CASE EVENT DATE: 20180602
